FAERS Safety Report 19847707 (Version 1)
Quarter: 2021Q3

REPORT INFORMATION
  Report Type: Spontaneous
  Country: US (occurrence: US)
  Receive Date: 20210917
  Receipt Date: 20210917
  Transmission Date: 20211014
  Serious: Yes (Hospitalization)
  Sender: FDA-Public Use
  Company Number: US-QILU PHARMACEUTICAL CO.LTD.-QLU-000065-2021

PATIENT
  Age: 52 Year
  Sex: Female

DRUGS (3)
  1. OXALIPLATIN. [Suspect]
     Active Substance: OXALIPLATIN
     Indication: COLON CANCER METASTATIC
     Dosage: 130 MILLIGRAM/SQ. METER, FOR 2 HOURS
     Route: 042
  2. CAPECITABINE. [Concomitant]
     Active Substance: CAPECITABINE
     Indication: COLON CANCER METASTATIC
     Dosage: 1000 MG/M2, BID (ON DAYS 1?14)
     Route: 048
  3. OXALIPLATIN. [Suspect]
     Active Substance: OXALIPLATIN
     Dosage: 85 MILLIGRAM/SQ. METER, EVERY 14 DAYS, FOR 4 HOURS
     Route: 042

REACTIONS (13)
  - Tremor [Recovered/Resolved]
  - Hypokinesia [Recovered/Resolved]
  - Grip strength decreased [Recovered/Resolved]
  - Cold dysaesthesia [Recovered/Resolved]
  - Speech disorder developmental [Recovered/Resolved]
  - Muscle tightness [Recovered/Resolved]
  - Vision blurred [Recovered/Resolved]
  - Paraesthesia [Recovered/Resolved]
  - Blepharospasm [Recovered/Resolved]
  - Dysarthria [Recovered/Resolved]
  - Hypertonia [Recovered/Resolved]
  - Dysphonia [Recovered/Resolved]
  - Visual field defect [Recovered/Resolved]
